FAERS Safety Report 15089665 (Version 1)
Quarter: 2018Q2

REPORT INFORMATION
  Report Type: Spontaneous
  Country: US (occurrence: US)
  Receive Date: 20180608
  Receipt Date: 20180608
  Transmission Date: 20180711
  Serious: Yes (Other)
  Sender: FDA-Public Use
  Company Number: None

PATIENT
  Age: 41 Year
  Sex: Female
  Weight: 78.3 kg

DRUGS (1)
  1. SUBOXONE [Suspect]
     Active Substance: BUPRENORPHINE HYDROCHLORIDE\NALOXONE HYDROCHLORIDE
     Indication: DRUG DEPENDENCE
     Dosage: ?          OTHER FREQUENCY:1.5 DAILY;?
     Route: 060
     Dates: start: 20180602, end: 20180603

REACTIONS (3)
  - Vomiting [None]
  - Emotional distress [None]
  - Nausea [None]

NARRATIVE: CASE EVENT DATE: 20180606
